FAERS Safety Report 12173533 (Version 1)
Quarter: 2016Q1

REPORT INFORMATION
  Report Type: Spontaneous
  Country: FR (occurrence: FR)
  Receive Date: 20160311
  Receipt Date: 20160311
  Transmission Date: 20160526
  Serious: Yes (Life-Threatening, Hospitalization)
  Sender: FDA-Public Use
  Company Number: FR-ASTRAZENECA-2016SE26596

PATIENT
  Age: 22157 Day
  Sex: Male

DRUGS (4)
  1. XEROQUEL [Suspect]
     Active Substance: QUETIAPINE FUMARATE
     Indication: BIPOLAR DISORDER
     Route: 048
     Dates: start: 201510
  2. TERALITHE [Concomitant]
     Active Substance: LITHIUM CARBONATE
     Indication: BIPOLAR DISORDER
     Route: 048
  3. LAMICTAL [Concomitant]
     Active Substance: LAMOTRIGINE
     Indication: BIPOLAR DISORDER
     Route: 048
  4. AMLOR [Concomitant]
     Active Substance: AMLODIPINE BESYLATE
     Indication: HYPERTENSION
     Route: 048

REACTIONS (8)
  - Suicide attempt [Recovering/Resolving]
  - Disorientation [Recovered/Resolved]
  - Pneumothorax [Unknown]
  - Fall [Unknown]
  - Confusional state [Recovered/Resolved]
  - Multiple injuries [Unknown]
  - Multiple fractures [Unknown]
  - Hypomania [Unknown]

NARRATIVE: CASE EVENT DATE: 20160118
